FAERS Safety Report 14340719 (Version 1)
Quarter: 2018Q1

REPORT INFORMATION
  Report Type: Report from Study
  Country: CO (occurrence: CO)
  Receive Date: 20180101
  Receipt Date: 20180101
  Transmission Date: 20180509
  Serious: Yes (Death, Life-Threatening, Other)
  Sender: FDA-Public Use
  Company Number: CO-AMGEN-COLSL2017192185

PATIENT
  Age: 79 Year
  Sex: Female

DRUGS (1)
  1. MIMPARA [Suspect]
     Active Substance: CINACALCET HYDROCHLORIDE
     Indication: HYPERPARATHYROIDISM SECONDARY
     Dosage: UNK, QD
     Route: 048
     Dates: start: 20171019, end: 20171102

REACTIONS (2)
  - Pneumonia [Fatal]
  - Post procedural infection [Fatal]

NARRATIVE: CASE EVENT DATE: 2017
